FAERS Safety Report 20916056 (Version 1)
Quarter: 2022Q2

REPORT INFORMATION
  Report Type: Spontaneous
  Country: US (occurrence: US)
  Receive Date: 20220604
  Receipt Date: 20220604
  Transmission Date: 20220720
  Serious: No
  Sender: FDA-Public Use
  Company Number: US-SA-SAC20220601001431

PATIENT
  Age: 55 Year
  Sex: Male

DRUGS (1)
  1. DUPIXENT [Suspect]
     Active Substance: DUPILUMAB
     Indication: Asthma
     Dosage: 300 MG
     Dates: start: 202201

REACTIONS (4)
  - Ocular hyperaemia [Not Recovered/Not Resolved]
  - Eye ulcer [Recovered/Resolved]
  - Eye infection bacterial [Recovered/Resolved]
  - Asthma [Not Recovered/Not Resolved]
